FAERS Safety Report 13111041 (Version 3)
Quarter: 2019Q3

REPORT INFORMATION
  Report Type: Report from Study
  Country: US (occurrence: US)
  Receive Date: 20170112
  Receipt Date: 20190702
  Transmission Date: 20191004
  Serious: Yes (Death)
  Sender: FDA-Public Use
  Company Number: US-PFIZER INC-2017010248

PATIENT

DRUGS (2)
  1. SORAFENIB [Suspect]
     Active Substance: SORAFENIB
     Indication: SYNOVIAL SARCOMA
     Dosage: 400 MG, 2X/DAY (3-WEEK CYCLE)
     Route: 048
  2. DACARBAZINE. [Suspect]
     Active Substance: DACARBAZINE
     Indication: SYNOVIAL SARCOMA
     Dosage: 1000 MG/M2, EVERY 3 WEEKS (1-HOUR INTRAVENOUS INFUSION)
     Route: 042

REACTIONS (1)
  - Febrile neutropenia [Fatal]
